FAERS Safety Report 8603183-2 (Version None)
Quarter: 2012Q3

REPORT INFORMATION
  Report Type: 
  Country: None (occurrence: None)
  Receive Date: 20120817
  Receipt Date: 20120808
  Transmission Date: 20120928
  Serious: No
  Sender: FDA-Public Use
  Company Number: US-ASTRAZENECA-2012SE38532

PATIENT
  Age: 58 Year
  Sex: Female

DRUGS (4)
  1. LIPITOR [Concomitant]
  2. CRESTOR [Suspect]
     Route: 048
  3. LOVASTATIN [Concomitant]
  4. SYMBICORT [Suspect]
     Route: 055

REACTIONS (3)
  - MUSCULAR WEAKNESS [None]
  - GAIT DISTURBANCE [None]
  - PAIN IN EXTREMITY [None]
